FAERS Safety Report 4954137-9 (Version None)
Quarter: 2006Q1

REPORT INFORMATION
  Report Type: 
  Country: None (occurrence: None)
  Receive Date: 20060327
  Receipt Date: 20060317
  Transmission Date: 20060701
  Serious: Yes (Hospitalization)
  Sender: FDA-Public Use
  Company Number: 2006AC00482

PATIENT
  Age: 27869 Day
  Sex: Female

DRUGS (3)
  1. PULMICORT TUBRUHALER [Suspect]
     Indication: LUNG DISORDER
     Route: 055
     Dates: start: 20060222
  2. VERAPAMIL [Concomitant]
  3. TOLBULSMIDO [Concomitant]

REACTIONS (3)
  - DIARRHOEA [None]
  - DYSPNOEA [None]
  - PALPITATIONS [None]
